FAERS Safety Report 12507613 (Version 3)
Quarter: 2016Q3

REPORT INFORMATION
  Report Type: Report from Study
  Country: US (occurrence: US)
  Receive Date: 20160629
  Receipt Date: 20160819
  Transmission Date: 20161109
  Serious: Yes (Death, Hospitalization)
  Sender: FDA-Public Use
  Company Number: PHEH2016US015857

PATIENT
  Age: 80 Year
  Sex: Male
  Weight: 105.67 kg

DRUGS (1)
  1. ENTRESTO [Suspect]
     Active Substance: SACUBITRIL\VALSARTAN
     Indication: PRODUCT USED FOR UNKNOWN INDICATION
     Route: 065

REACTIONS (9)
  - Cardiac failure congestive [Unknown]
  - Hypokalaemia [Unknown]
  - Chronic kidney disease [Unknown]
  - Death [Fatal]
  - Hyperglycaemia [Unknown]
  - Hyponatraemia [Unknown]
  - Coronary artery disease [Unknown]
  - Hypomagnesaemia [Unknown]
  - Hypotension [Unknown]

NARRATIVE: CASE EVENT DATE: 20160620
